FAERS Safety Report 24026284 (Version 2)
Quarter: 2024Q2

REPORT INFORMATION
  Report Type: Report from Study
  Country: CN (occurrence: CN)
  Receive Date: 20240628
  Receipt Date: 20240628
  Transmission Date: 20240716
  Serious: No
  Sender: FDA-Public Use
  Company Number: CN-ROCHE-3290556

PATIENT
  Age: 38 Year
  Sex: Female
  Weight: 80.0 kg

DRUGS (17)
  1. ALECTINIB [Suspect]
     Active Substance: ALECTINIB
     Indication: Lung cancer metastatic
     Route: 048
     Dates: start: 20210902
  2. BEVACIZUMAB [Concomitant]
     Active Substance: BEVACIZUMAB
     Dates: start: 20210916, end: 20211208
  3. RIVAROXABAN [Concomitant]
     Active Substance: RIVAROXABAN
     Indication: Thrombosis prophylaxis
     Route: 048
     Dates: start: 20211013, end: 20211026
  4. ZOLEDRONIC ACID [Concomitant]
     Active Substance: ZOLEDRONIC ACID
     Dosage: SUBSEQUENT DOSE ON FROM 09/NOV/2021 TO 09/NOV/2021 AND 08/DEC/2021 TO 08/DEC/2021
     Route: 050
     Dates: start: 20211013, end: 20211013
  5. BICYCLOL [Concomitant]
     Active Substance: BICYCLOL
     Indication: Hypertension
     Dosage: SUBSEQUENT DOSE FROM 08/DEC/2021 TO 21/DEC/2021
     Route: 048
     Dates: start: 20211109, end: 20211122
  6. BUCINNAZINE [Concomitant]
     Active Substance: BUCINNAZINE
     Dosage: FREQUENCY TEXT:PRN
     Route: 030
     Dates: start: 20211220, end: 20211220
  7. DIPHENHYDRAMINE [Concomitant]
     Active Substance: DIPHENHYDRAMINE
     Dosage: FREQUENCY TEXT:PRN
     Route: 042
     Dates: start: 20211221, end: 20211221
  8. DEXAMETHASONE [Concomitant]
     Active Substance: DEXAMETHASONE
     Dosage: FREQUENCY TEXT:PRN
     Route: 042
     Dates: start: 20211221, end: 20211221
  9. LIDOCAINE [Concomitant]
     Active Substance: LIDOCAINE
     Indication: Local anaesthesia
     Dosage: FREQUENCY TEXT:PRN
     Route: 030
     Dates: start: 20211221, end: 20211221
  10. ATROPINE [Concomitant]
     Active Substance: ATROPINE\ATROPINE SULFATE
     Dosage: FREQUENCY TEXT:PRN
     Route: 042
     Dates: start: 20211221, end: 20211221
  11. RABEPRAZOLE SODIUM [Concomitant]
     Active Substance: RABEPRAZOLE SODIUM
     Route: 042
     Dates: start: 20211221, end: 20211221
  12. DEXTROSE [Concomitant]
     Active Substance: DEXTROSE\DEXTROSE MONOHYDRATE
     Route: 042
     Dates: start: 20211221, end: 20211221
  13. VITAMIN C [Concomitant]
     Active Substance: ASCORBIC ACID
     Route: 042
     Dates: start: 20211221, end: 20211221
  14. GLUTATHIONE [Concomitant]
     Active Substance: GLUTATHIONE
     Route: 042
     Dates: start: 20211221, end: 20211221
  15. MORPHINE [Concomitant]
     Active Substance: MORPHINE
     Route: 042
     Dates: start: 20211221, end: 20211221
  16. METHYLPREDNISOLONE [Concomitant]
     Active Substance: METHYLPREDNISOLONE
     Route: 042
     Dates: start: 20211221, end: 20211221
  17. RIVAROXABAN [Concomitant]
     Active Substance: RIVAROXABAN
     Route: 048
     Dates: start: 20211208, end: 20211221

REACTIONS (2)
  - Blood lactate dehydrogenase increased [Recovered/Resolved]
  - Anaemia [Recovered/Resolved]

NARRATIVE: CASE EVENT DATE: 20210916
